FAERS Safety Report 15433390 (Version 1)
Quarter: 2018Q4

REPORT INFORMATION
  Report Type: Spontaneous
  Country: JP (occurrence: JP)
  Receive Date: 20180927
  Receipt Date: 20180927
  Transmission Date: 20190204
  Serious: Yes (Other)
  Sender: FDA-Public Use
  Company Number: JP-SUN PHARMACEUTICAL INDUSTRIES LTD-2018R3-181199

PATIENT
  Age: 6 Year
  Sex: Male
  Weight: 24 kg

DRUGS (15)
  1. MIYA-BM FINE GRANULES [Concomitant]
     Indication: GASTROINTESTINAL BACTERIAL INFECTION
     Dosage: UNK (1.5G)
     Route: 065
  2. THYRADIN-S [Concomitant]
     Active Substance: LEVOTHYROXINE
     Indication: HYPOTHYROIDISM
     Dosage: UNK (50 MICROGRAM)
     Route: 065
  3. ONEALFA [Concomitant]
     Active Substance: ALFACALCIDOL
     Indication: OSTEOPOROSIS
     Dosage: UNK (2 DF)
     Route: 065
  4. GLUCONSAN K [Concomitant]
     Active Substance: POTASSIUM GLUCONATE
     Indication: HYPOKALAEMIA
     Dosage: UNK (1.5G)
     Route: 065
     Dates: start: 201404
  5. TSUMURA DAIKENCHUTO [Concomitant]
     Active Substance: HERBALS
     Indication: GASTROINTESTINAL MOTILITY DISORDER
     Dosage: UNK (5G)
     Route: 065
     Dates: start: 20180621
  6. RIVOTRIL FINE GRANULES [Suspect]
     Active Substance: CLONAZEPAM
     Dosage: 0.5 UNK, UNK
     Route: 065
     Dates: start: 20180725
  7. MUCOSOLVAN DS [Concomitant]
     Indication: MUCOUS MEMBRANE DISORDER
     Dosage: UNK (24MG)
     Route: 065
  8. TERNELIN [Suspect]
     Active Substance: TIZANIDINE
     Dosage: 1.5 MG, TID
     Route: 065
     Dates: start: 20180801
  9. MUCOYNE DS [Concomitant]
     Indication: MUCOUS MEMBRANE DISORDER
     Dosage: UNK (750MG)
     Route: 065
  10. KATIV-N [Concomitant]
     Indication: HYPOPROTHROMBINAEMIA
     Dosage: UNK (1 DF)
     Route: 065
  11. TERNELIN [Suspect]
     Active Substance: TIZANIDINE
     Indication: MUSCLE TIGHTNESS
     Dosage: 3 MG, DAILY
     Route: 065
     Dates: start: 20180505, end: 20180731
  12. RIVOTRIL FINE GRANULES [Suspect]
     Active Substance: CLONAZEPAM
     Indication: EPILEPSY
     Dosage: 0.6 MG, DAILY
     Route: 065
     Dates: end: 20180724
  13. TSUMURA DAIKENCHUTO [Concomitant]
     Active Substance: HERBALS
     Indication: ABDOMINAL DISTENSION
  14. MIYA-BM FINE GRANULES [Concomitant]
     Indication: GASTROINTESTINAL MOTILITY DISORDER
  15. KRACIE RIKKUNSHITO EXTRACT FINE GRANULES [Concomitant]
     Indication: GASTROOESOPHAGEAL REFLUX DISEASE
     Dosage: UNK (4G)
     Route: 065
     Dates: start: 20180603

REACTIONS (1)
  - Sinus bradycardia [Recovered/Resolved]

NARRATIVE: CASE EVENT DATE: 20180723
